FAERS Safety Report 8064654-3 (Version None)
Quarter: 2012Q1

REPORT INFORMATION
  Report Type: 
  Country: None (occurrence: None)
  Receive Date: 20120123
  Receipt Date: 20111102
  Transmission Date: 20120608
  Serious: Yes (Other)
  Sender: FDA-Public Use
  Company Number: JP-ROCHE-1020639

PATIENT

DRUGS (1)
  1. TOCILIZUMAB [Suspect]
     Indication: SYSTEMIC SCLEROSIS

REACTIONS (1)
  - ILEUS [None]
